FAERS Safety Report 7741396-2 (Version None)
Quarter: 2011Q3

REPORT INFORMATION
  Report Type: 
  Country: None (occurrence: None)
  Receive Date: 20110909
  Receipt Date: 20110905
  Transmission Date: 20111222
  Serious: Yes (Death)
  Sender: FDA-Public Use
  Company Number: TN-SANOFI-AVENTIS-2011SA057621

PATIENT
  Age: 73 Year
  Sex: Female

DRUGS (6)
  1. DEPAKENE [Concomitant]
     Route: 048
     Dates: start: 20071201, end: 20110625
  2. PLAVIX [Suspect]
     Indication: STENT PLACEMENT
     Route: 048
     Dates: start: 20071201, end: 20110625
  3. PLAVIX [Suspect]
     Indication: ACUTE CORONARY SYNDROME
     Route: 048
     Dates: start: 20071201, end: 20110625
  4. ASPIRIN [Concomitant]
     Route: 048
     Dates: start: 20071201, end: 20110625
  5. CANDESARTAN/HYDROCHLOROTHIAZIDE [Concomitant]
     Route: 048
     Dates: start: 20071201, end: 20110625
  6. INSULATARD NPH HUMAN [Concomitant]
     Route: 058
     Dates: start: 20071201, end: 20110625

REACTIONS (1)
  - SUDDEN DEATH [None]
